FAERS Safety Report 22027206 (Version 1)
Quarter: 2023Q1

REPORT INFORMATION
  Report Type: Spontaneous
  Country: US (occurrence: US)
  Receive Date: 20230223
  Receipt Date: 20230223
  Transmission Date: 20230417
  Serious: No
  Sender: FDA-Public Use
  Company Number: US-MORPHOSYS US-2022-MOR002181-US

PATIENT
  Age: 57 Year
  Sex: Male

DRUGS (3)
  1. MONJUVI [Suspect]
     Active Substance: TAFASITAMAB-CXIX
     Indication: Diffuse large B-cell lymphoma
     Dosage: UNK
     Route: 042
     Dates: start: 202112, end: 202204
  2. REVLIMID [Suspect]
     Active Substance: LENALIDOMIDE
     Indication: Diffuse large B-cell lymphoma
     Dosage: 25 MILLIGRAM
     Dates: start: 202112, end: 202204
  3. VENETOCLAX [Suspect]
     Active Substance: VENETOCLAX
     Indication: Diffuse large B-cell lymphoma
     Dosage: UNK
     Dates: start: 202112

REACTIONS (7)
  - Fatigue [Unknown]
  - Fatigue [Unknown]
  - Abdominal lymphadenopathy [Unknown]
  - Dysphagia [Unknown]
  - Pain [Unknown]
  - Malaise [Unknown]
  - Asthenia [Unknown]
